FAERS Safety Report 16395744 (Version 2)
Quarter: 2019Q3

REPORT INFORMATION
  Report Type: Report from Study
  Country: US (occurrence: US)
  Receive Date: 20190605
  Receipt Date: 20190715
  Transmission Date: 20191004
  Serious: Yes (Other)
  Sender: FDA-Public Use
  Company Number: US-GILEAD-2019-0411351

PATIENT
  Age: 54 Year
  Sex: Female

DRUGS (2)
  1. AMBRISENTAN [Suspect]
     Active Substance: AMBRISENTAN
     Indication: PULMONARY ARTERIAL HYPERTENSION
     Dosage: 5 MG, QD
     Route: 065
     Dates: start: 20171209
  2. TADALAFIL. [Concomitant]
     Active Substance: TADALAFIL

REACTIONS (4)
  - Intentional dose omission [Not Recovered/Not Resolved]
  - Memory impairment [Not Recovered/Not Resolved]
  - Product dose omission [Not Recovered/Not Resolved]
  - Dialysis [Not Recovered/Not Resolved]
